FAERS Safety Report 15765500 (Version 1)
Quarter: 2018Q4

REPORT INFORMATION
  Report Type: Spontaneous
  Country: US (occurrence: US)
  Receive Date: 20181218
  Receipt Date: 20181218
  Transmission Date: 20190205
  Serious: No
  Sender: FDA-Public Use
  Company Number: None

PATIENT

DRUGS (2)
  1. ADRENALIN [Suspect]
     Active Substance: EPINEPHRINE
     Dosage: ?          OTHER DOSE:SOLUTION;OTHER ROUTE:NASAL?
  2. ADRENALIN [Suspect]
     Active Substance: EPINEPHRINE
     Route: 058

REACTIONS (4)
  - Product preparation error [None]
  - Product selection error [None]
  - Product label confusion [None]
  - Product packaging confusion [None]
